FAERS Safety Report 23507382 (Version 1)
Quarter: 2024Q1

REPORT INFORMATION
  Report Type: Spontaneous
  Country: US (occurrence: US)
  Receive Date: 20240209
  Receipt Date: 20240209
  Transmission Date: 20240409
  Serious: No
  Sender: FDA-Public Use
  Company Number: US-ABBVIE-5623495

PATIENT

DRUGS (1)
  1. RINVOQ [Suspect]
     Active Substance: UPADACITINIB
     Indication: Product used for unknown indication
     Route: 048

REACTIONS (4)
  - Nervous system disorder [Unknown]
  - Foot fracture [Unknown]
  - Myalgia [Unknown]
  - Fracture delayed union [Unknown]

NARRATIVE: CASE EVENT DATE: 20240101
